FAERS Safety Report 8850216 (Version 1)
Quarter: 2012Q4

REPORT INFORMATION
  Report Type: 
  Country: US (occurrence: US)
  Receive Date: 20121019
  Receipt Date: 20121019
  Transmission Date: 20130627
  Serious: No
  Sender: FDA-Public Use
  Company Number: US-BAYER-2012-109477

PATIENT

DRUGS (6)
  1. ALEVE CAPLET/TABLET,MIDOL EXTENDED RELIEF CAPLET [Suspect]
     Indication: HEADACHE
     Dosage: UNK
  2. BAYER GENUINE ASPIRIN ORIGINAL STRENGTH [Suspect]
     Indication: HEADACHE
  3. IBUPROFEN [Concomitant]
  4. ADVIL [Concomitant]
  5. TYLENOL [PARACETAMOL] [Concomitant]
  6. ANACIN [Concomitant]

REACTIONS (1)
  - Headache [None]
